FAERS Safety Report 16929014 (Version 4)
Quarter: 2019Q4

REPORT INFORMATION
  Report Type: Report from Study
  Country: US (occurrence: US)
  Receive Date: 20191017
  Receipt Date: 20191219
  Transmission Date: 20200122
  Serious: Yes (Other)
  Sender: FDA-Public Use
  Company Number: US-GLAXOSMITHKLINE-2019-TSO01215-US

PATIENT
  Age: 68 Year
  Sex: Female

DRUGS (6)
  1. PROZAC [Concomitant]
     Active Substance: FLUOXETINE HYDROCHLORIDE
     Indication: PRODUCT USED FOR UNKNOWN INDICATION
     Dosage: UNKNOWN
  2. NEXIUM (ESOMEPRAZOLE MAGNESIUM TRIHYDRATE) [Concomitant]
     Indication: PRODUCT USED FOR UNKNOWN INDICATION
  3. NIRAPARIB [Suspect]
     Active Substance: NIRAPARIB
     Indication: METASTATIC LYMPHOMA
     Dosage: 200 MG, QD
     Route: 048
     Dates: start: 20190222
  4. NIRAPARIB [Suspect]
     Active Substance: NIRAPARIB
     Dosage: 200 MG, QD
     Route: 048
  5. NIRAPARIB [Suspect]
     Active Substance: NIRAPARIB
     Indication: OVARIAN CANCER
     Dosage: 300 MG, QD
     Route: 048
     Dates: start: 20190202, end: 2019
  6. NORCO [Concomitant]
     Active Substance: ACETAMINOPHEN\HYDROCODONE BITARTRATE
     Indication: PRODUCT USED FOR UNKNOWN INDICATION
     Dosage: UNK

REACTIONS (15)
  - Gait disturbance [Recovering/Resolving]
  - Dyspepsia [Recovered/Resolved]
  - Platelet count decreased [Not Recovered/Not Resolved]
  - Fall [Unknown]
  - Diarrhoea [Unknown]
  - Trigger finger [Unknown]
  - Vomiting [Not Recovered/Not Resolved]
  - Foreign body in respiratory tract [Unknown]
  - Laryngitis [Unknown]
  - Hypersomnia [Recovering/Resolving]
  - Hernia [Unknown]
  - Movement disorder [Recovered/Resolved]
  - Wrist fracture [Unknown]
  - Asthenia [Not Recovered/Not Resolved]
  - Contusion [Not Recovered/Not Resolved]

NARRATIVE: CASE EVENT DATE: 20191007
